FAERS Safety Report 6384492-7 (Version None)
Quarter: 2009Q4

REPORT INFORMATION
  Report Type: 
  Country: None (occurrence: None)
  Receive Date: 20091001
  Receipt Date: 20090922
  Transmission Date: 20100525
  Serious: Yes (Hospitalization)
  Sender: FDA-Public Use
  Company Number: US-ABBOTT-09P-163-0597560-00

PATIENT
  Sex: Female
  Weight: 59.2 kg

DRUGS (16)
  1. SYNTHROID [Suspect]
     Indication: HYPOTHYROIDISM
     Route: 048
     Dates: start: 20070801
  2. SYNTHROID [Suspect]
     Route: 048
     Dates: end: 20090831
  3. SYNTHROID [Suspect]
     Route: 048
     Dates: start: 20090831
  4. KALETRA [Suspect]
     Indication: HIV TEST POSITIVE
     Dosage: 4 - 200/50 MG TABLETS DAILY
     Route: 048
     Dates: start: 20070801
  5. KALETRA [Suspect]
  6. KALETRA [Suspect]
  7. PERCOCET [Concomitant]
     Indication: DRUG USE FOR UNKNOWN INDICATION
  8. AMBIEN [Concomitant]
     Indication: DRUG USE FOR UNKNOWN INDICATION
  9. ALDARA [Concomitant]
     Indication: SKIN PAPILLOMA
     Route: 061
  10. VITAMIN B-12 [Concomitant]
     Indication: DRUG USE FOR UNKNOWN INDICATION
  11. NORVASC [Concomitant]
     Indication: DRUG USE FOR UNKNOWN INDICATION
     Route: 048
  12. LISINOPRIL [Concomitant]
     Indication: DRUG USE FOR UNKNOWN INDICATION
     Route: 048
  13. METOPROLOL [Concomitant]
     Indication: DRUG USE FOR UNKNOWN INDICATION
     Route: 048
  14. NEXIUM [Concomitant]
     Indication: DRUG USE FOR UNKNOWN INDICATION
     Route: 048
  15. KEPPRA [Concomitant]
     Indication: DRUG USE FOR UNKNOWN INDICATION
     Route: 048
  16. TRAVADA [Concomitant]
     Indication: HIV TEST POSITIVE
     Dosage: 200/300 MG TABLETS
     Route: 048

REACTIONS (3)
  - PNEUMONIA [None]
  - THYROID FUNCTION TEST ABNORMAL [None]
  - THYROXINE ABNORMAL [None]
